FAERS Safety Report 17670327 (Version 1)
Quarter: 2020Q2

REPORT INFORMATION
  Report Type: Spontaneous
  Country: ES (occurrence: ES)
  Receive Date: 20200415
  Receipt Date: 20200415
  Transmission Date: 20200713
  Serious: Yes (Other)
  Sender: FDA-Public Use
  Company Number: ES-MYLANLABS-2020M1037300

PATIENT
  Age: 44 Year
  Sex: Male

DRUGS (10)
  1. AMLODIPINE [Concomitant]
     Active Substance: AMLODIPINE BESYLATE
     Indication: THROMBOANGIITIS OBLITERANS
     Dosage: UNK
  2. OMEPRAZOLE. [Suspect]
     Active Substance: OMEPRAZOLE
     Indication: PRODUCT USED FOR UNKNOWN INDICATION
     Dosage: 20 MILLIGRAM, 1X / DAY
     Route: 065
  3. AMLODIPINE [Concomitant]
     Active Substance: AMLODIPINE BESYLATE
     Indication: RAYNAUD^S PHENOMENON
     Dosage: 5 MILLIGRAM, 1X / DAY
  4. ALPROSTADIL. [Concomitant]
     Active Substance: ALPROSTADIL
     Dosage: UNK, UNKNOWN
     Route: 042
  5. PARACETAMOL + TRAMADOL HYDROCHLORIDE [Concomitant]
     Active Substance: ACETAMINOPHEN\TRAMADOL HYDROCHLORIDE
     Indication: ANALGESIC THERAPY
     Dosage: 323/37.5 MG, EVERY 8 HOURS
  6. FENTANYL. [Concomitant]
     Active Substance: FENTANYL
     Dosage: 25 MICROGRAM, HOURLY
     Route: 062
  7. BOSENTAN. [Concomitant]
     Active Substance: BOSENTAN
     Indication: THROMBOANGIITIS OBLITERANS
     Dosage: 62.5 MILLIGRAM, 2X / DAY
  8. ENOXAPARIN [Concomitant]
     Active Substance: ENOXAPARIN
     Dosage: 40 MILLIGRAM, 1X / DAY
     Route: 058
  9. ADIRO [Concomitant]
     Active Substance: ASPIRIN
     Dosage: 100 MILLIGRAM, 1X / DAY
  10. PARACETAMOL + TRAMADOL HYDROCHLORIDE [Concomitant]
     Active Substance: ACETAMINOPHEN\TRAMADOL HYDROCHLORIDE
     Indication: THROMBOANGIITIS OBLITERANS

REACTIONS (2)
  - Thromboangiitis obliterans [Unknown]
  - Condition aggravated [Unknown]
